FAERS Safety Report 4931810-X (Version None)
Quarter: 2006Q1

REPORT INFORMATION
  Report Type: 
  Country: None (occurrence: None)
  Receive Date: 20060303
  Receipt Date: 20060227
  Transmission Date: 20060701
  Serious: Yes (Other)
  Sender: FDA-Public Use
  Company Number: JP-BRACCO-BRO-009862

PATIENT
  Age: 60 Year
  Sex: Male

DRUGS (2)
  1. IOPAMIRON [Suspect]
     Route: 050
     Dates: start: 20060221, end: 20060221
  2. IOPAMIRON [Suspect]
     Indication: ANGIOGRAM CEREBRAL
     Route: 050
     Dates: start: 20060221, end: 20060221

REACTIONS (3)
  - FLUSHING [None]
  - HEMIPLEGIA [None]
  - VASCULITIS [None]
